FAERS Safety Report 4507466-7 (Version None)
Quarter: 2004Q4

REPORT INFORMATION
  Report Type: 
  Country: None (occurrence: None)
  Receive Date: 20041118
  Receipt Date: 20041105
  Transmission Date: 20050328
  Serious: Yes (Hospitalization)
  Sender: FDA-Public Use
  Company Number: US014260

PATIENT
  Age: 18 Year
  Sex: Male

DRUGS (2)
  1. PROVIGIL [Suspect]
     Indication: NARCOLEPSY
     Dosage: 200 MG QD ORAL
     Route: 048
     Dates: start: 20031105
  2. METHYLPHENIDATE [Concomitant]

REACTIONS (4)
  - CYTOMEGALOVIRUS MONONUCLEOSIS [None]
  - EPSTEIN-BARR VIRUS INFECTION [None]
  - IMMUNOSUPPRESSION [None]
  - PYELONEPHRITIS [None]
